FAERS Safety Report 7076214-1 (Version None)
Quarter: 2010Q4

REPORT INFORMATION
  Report Type: 
  Country: None (occurrence: None)
  Receive Date: 20101101
  Receipt Date: 20101020
  Transmission Date: 20110411
  Serious: Yes (Other)
  Sender: FDA-Public Use
  Company Number: US-BAYER-201037865NA

PATIENT
  Age: 47 Year
  Sex: Female

DRUGS (1)
  1. MIRENA [Suspect]
     Indication: MENORRHAGIA
     Route: 015
     Dates: start: 20091001

REACTIONS (6)
  - COUGH [None]
  - HEADACHE [None]
  - HYPERSENSITIVITY [None]
  - LYMPHADENOPATHY [None]
  - NASAL CONGESTION [None]
  - NECK PAIN [None]
